FAERS Safety Report 9004654 (Version 1)
Quarter: 2013Q1

REPORT INFORMATION
  Report Type: Spontaneous
  Country: US (occurrence: None)
  Receive Date: 20130102
  Receipt Date: 20130102
  Transmission Date: 20140127
  Serious: Yes (Disabling)
  Sender: FDA-Public Use
  Company Number: None

PATIENT
  Age: 54 Year
  Sex: Female
  Weight: 63.5 kg

DRUGS (1)
  1. ZICAM [Suspect]
     Indication: NASAL CONGESTION
     Dates: start: 20091204, end: 20091210

REACTIONS (1)
  - Anosmia [None]
